FAERS Safety Report 5742363-0 (Version None)
Quarter: 2008Q2

REPORT INFORMATION
  Report Type: 
  Country: None (occurrence: None)
  Receive Date: 20080514
  Receipt Date: 20080514
  Transmission Date: 20081010
  Serious: Yes (Hospitalization)
  Sender: FDA-Public Use
  Company Number: None

PATIENT
  Sex: Male
  Weight: 83 kg

DRUGS (8)
  1. CYCLOPHOSPHAMIDE [Suspect]
     Dosage: 3860 MG
     Dates: end: 20080222
  2. DOXORUBICIN HYDROCHLORIDE [Suspect]
     Dosage: 96 MG
     Dates: end: 20080222
  3. LEUCOVORIN CALCIUM [Suspect]
     Dosage: 300 MG
     Dates: end: 20080223
  4. MESNA [Suspect]
     Dosage: 4630 MG
     Dates: end: 20080222
  5. METHOTREXATE [Suspect]
     Dosage: 580 MG
     Dates: end: 20080221
  6. PREDNISONE TAB [Suspect]
     Dosage: 400 MG
     Dates: end: 20080223
  7. RITUXIMAB (MOAB C2B8 ANTI CD20, CHIMERIC) [Suspect]
     Dosage: 724 MG
     Dates: end: 20080220
  8. VINCRISTINE SULFATE [Suspect]
     Dosage: 2 MG
     Dates: end: 20080222

REACTIONS (1)
  - HYPOCALCAEMIA [None]
